FAERS Safety Report 18259225 (Version 2)
Quarter: 2020Q3

REPORT INFORMATION
  Report Type: Spontaneous
  Country: CA (occurrence: CA)
  Receive Date: 20200911
  Receipt Date: 20200922
  Transmission Date: 20201103
  Serious: Yes (Hospitalization)
  Sender: FDA-Public Use
  Company Number: CA-PFIZER INC-2020141185

PATIENT
  Age: 64 Year
  Sex: Female

DRUGS (2)
  1. XELJANZ [Suspect]
     Active Substance: TOFACITINIB CITRATE
     Indication: RHEUMATOID ARTHRITIS
     Dosage: 5 MG, 2X/DAY
     Route: 048
     Dates: start: 2020
  2. METHOTREXATE. [Concomitant]
     Active Substance: METHOTREXATE
     Dosage: 10 MG Q UNK
     Route: 048
     Dates: start: 201808

REACTIONS (3)
  - Malaise [Unknown]
  - Pain [Unknown]
  - Joint swelling [Unknown]

NARRATIVE: CASE EVENT DATE: 2020
